FAERS Safety Report 6242448-9 (Version None)
Quarter: 2009Q2

REPORT INFORMATION
  Report Type: 
  Country: None (occurrence: None)
  Receive Date: 20090622
  Receipt Date: 20090622
  Transmission Date: 20091009
  Serious: Yes (Hospitalization)
  Sender: FDA-Public Use
  Company Number: None

PATIENT
  Age: 42 Year
  Sex: Female
  Weight: 59.8748 kg

DRUGS (1)
  1. TYSABRI [Suspect]
     Dosage: ONE TREATMENT MONTHLY
     Dates: start: 20080112, end: 20080819

REACTIONS (8)
  - AMNESIA [None]
  - ANXIETY [None]
  - DEPRESSION [None]
  - HEARING IMPAIRED [None]
  - LOSS OF CONSCIOUSNESS [None]
  - MUSCLE SPASTICITY [None]
  - MUSCULAR WEAKNESS [None]
  - VISUAL IMPAIRMENT [None]
